FAERS Safety Report 13122470 (Version 2)
Quarter: 2017Q1

REPORT INFORMATION
  Report Type: Spontaneous
  Country: DE (occurrence: DE)
  Receive Date: 20170117
  Receipt Date: 20170216
  Transmission Date: 20170428
  Serious: Yes (Other)
  Sender: FDA-Public Use
  Company Number: DE-PFIZER INC-2017015193

PATIENT
  Age: 35 Year
  Sex: Female
  Weight: 60 kg

DRUGS (3)
  1. XARELTO [Concomitant]
     Active Substance: RIVAROXABAN
     Indication: VENOUS THROMBOSIS LIMB
     Dosage: 15 MG, DAILY
  2. CRIZOTINIB [Suspect]
     Active Substance: CRIZOTINIB
     Indication: THROMBOSIS
     Dosage: 200 MG, 2X/DAY
     Route: 048
  3. CRIZOTINIB [Suspect]
     Active Substance: CRIZOTINIB
     Indication: NON-SMALL CELL LUNG CANCER
     Dosage: 250 MG, 2X/DAY (1-0-1)
     Route: 048

REACTIONS (2)
  - Leukopenia [Unknown]
  - Bradycardia [Unknown]

NARRATIVE: CASE EVENT DATE: 201609
